FAERS Safety Report 9709351 (Version 1)
Quarter: 2013Q4

REPORT INFORMATION
  Report Type: Report from Study
  Country: GB (occurrence: GB)
  Receive Date: 20131125
  Receipt Date: 20131125
  Transmission Date: 20140711
  Serious: Yes (Hospitalization)
  Sender: FDA-Public Use
  Company Number: GB-ROCHE-1308483

PATIENT
  Age: 68 Year
  Sex: Female
  Weight: 93.89 kg

DRUGS (7)
  1. RANIBIZUMAB [Suspect]
     Indication: PRODUCT USED FOR UNKNOWN INDICATION
     Route: 050
     Dates: start: 20110331
  2. RAMIPRIL [Concomitant]
  3. SIMVASTATIN [Concomitant]
  4. METFORMIN [Concomitant]
     Route: 065
  5. BENDROFLUMETHIAZIDE [Concomitant]
  6. TRAMADOL [Concomitant]
     Route: 065
     Dates: start: 20131104
  7. AMLODIPINE [Concomitant]

REACTIONS (2)
  - Fall [Unknown]
  - Femoral neck fracture [Recovered/Resolved]
